FAERS Safety Report 4315130-2 (Version None)
Quarter: 2004Q1

REPORT INFORMATION
  Report Type: 
  Country: None (occurrence: None)
  Receive Date: 20040310
  Receipt Date: 20040227
  Transmission Date: 20041129
  Serious: Yes (Hospitalization)
  Sender: FDA-Public Use
  Company Number: US-GLAXOSMITHKLINE-A0500591A

PATIENT
  Age: 66 Year
  Sex: Female

DRUGS (16)
  1. TOPOTECAN [Suspect]
     Indication: OVARIAN CANCER
     Dosage: 2.5MGM2 WEEKLY
     Route: 042
     Dates: start: 20040210, end: 20040210
  2. NAVELBINE [Suspect]
     Indication: OVARIAN CANCER
     Dosage: 25MGM2 WEEKLY
     Route: 042
     Dates: start: 20040210, end: 20040210
  3. DILACOR XR [Concomitant]
  4. COZAAR [Concomitant]
  5. GUANFACINE HCL [Concomitant]
  6. CLONIDINE [Concomitant]
  7. FAMOTIDINE [Concomitant]
  8. VIOXX [Concomitant]
  9. AMITRIPTYLINE HCL [Concomitant]
  10. DEMADEX [Concomitant]
  11. DILANTIN [Concomitant]
  12. OXAZEPAM [Concomitant]
  13. NEURONTIN [Concomitant]
  14. VICODIN [Concomitant]
  15. VITAMIN B COMPLEX CAP [Concomitant]
  16. COLACE [Concomitant]

REACTIONS (35)
  - ABDOMINAL PAIN [None]
  - ALANINE AMINOTRANSFERASE INCREASED [None]
  - ASPARTATE AMINOTRANSFERASE INCREASED [None]
  - BLOOD ALKALINE PHOSPHATASE INCREASED [None]
  - BLOOD CALCIUM INCREASED [None]
  - BLOOD CREATININE INCREASED [None]
  - BLOOD UREA INCREASED [None]
  - CARDIAC MURMUR [None]
  - CONFUSIONAL STATE [None]
  - CONSTIPATION [None]
  - COUGH [None]
  - DEAFNESS [None]
  - DEPRESSION [None]
  - DYSPHASIA [None]
  - DYSPNOEA [None]
  - HAEMOGLOBIN DECREASED [None]
  - HYPOTENSION [None]
  - HYPOXIA [None]
  - MENTAL STATUS CHANGES [None]
  - MICROANGIOPATHY [None]
  - NAUSEA [None]
  - NEUTROPHIL COUNT DECREASED [None]
  - OEDEMA PERIPHERAL [None]
  - PARANASAL SINUS HYPERSECRETION [None]
  - PHARYNGOLARYNGEAL PAIN [None]
  - PHOTOPHOBIA [None]
  - PLATELET COUNT DECREASED [None]
  - PLEURAL EFFUSION [None]
  - PNEUMONIA VIRAL [None]
  - PYREXIA [None]
  - RASH ERYTHEMATOUS [None]
  - TREMOR [None]
  - VOMITING [None]
  - WHITE BLOOD CELL COUNT DECREASED [None]
  - WHITE BLOOD CELLS URINE POSITIVE [None]
